FAERS Safety Report 20553850 (Version 1)
Quarter: 2022Q1

REPORT INFORMATION
  Report Type: Spontaneous
  Country: RU (occurrence: RU)
  Receive Date: 20220304
  Receipt Date: 20220304
  Transmission Date: 20220423
  Serious: Yes (Other)
  Sender: FDA-Public Use
  Company Number: RU-ABBOTT-2022A-1346321

PATIENT
  Age: 10 Year
  Sex: Female
  Weight: 29 kg

DRUGS (7)
  1. CREON [Suspect]
     Active Substance: PANCRELIPASE AMYLASE\PANCRELIPASE LIPASE\PANCRELIPASE PROTEASE
     Indication: Pancreatic enzyme replacement therapy
     Dosage: DAILY DOSE: 30 CAPSULES; UNIT DOSE: 5 CAPSULES?CREON 10000
     Route: 048
     Dates: start: 20200801, end: 20201101
  2. PULMOZYME [Concomitant]
     Active Substance: DORNASE ALFA
     Indication: Sputum retention
     Dosage: 2,5 MG ONCE A DAY
     Route: 055
  3. ACETYLCYSTEINE [Concomitant]
     Active Substance: ACETYLCYSTEINE
     Indication: Sputum retention
     Dosage: DAILY DOSE: 600 MG
     Route: 048
  4. FENOTEROL HYDROBROMIDE\IPRATROPIUM BROMIDE [Concomitant]
     Active Substance: FENOTEROL HYDROBROMIDE\IPRATROPIUM BROMIDE
     Indication: Sputum retention
     Dosage: DAILY DOSE: 60 DROPS; UNIT DOSE: 20 DROPS
     Route: 055
  5. AMBROXOL [Concomitant]
     Active Substance: AMBROXOL
     Indication: Sputum retention
     Dosage: DAILY DOSE: 3 MG
     Route: 048
  6. COLISTIN [Concomitant]
     Active Substance: COLISTIN
     Indication: Antibiotic therapy
     Dosage: 2 MILLION UNITS 3 TIMES PER DAY
     Route: 055
  7. URSODIOL [Concomitant]
     Active Substance: URSODIOL
     Indication: Product used for unknown indication
     Dosage: DAILY DOSE: 4 CAPSULE; UNIT DOSE: 2 CAPSULES
     Route: 048

REACTIONS (4)
  - Abdominal distension [Recovered/Resolved]
  - Steatorrhoea [Recovered/Resolved]
  - Abdominal pain [Recovered/Resolved]
  - Diarrhoea [Recovered/Resolved]

NARRATIVE: CASE EVENT DATE: 20200808
